FAERS Safety Report 4818695-7 (Version None)
Quarter: 2005Q4

REPORT INFORMATION
  Report Type: 
  Country: None (occurrence: None)
  Receive Date: 20051102
  Receipt Date: 20050907
  Transmission Date: 20060501
  Serious: Yes (Hospitalization)
  Sender: FDA-Public Use
  Company Number: US-MERCK-0509USA00825

PATIENT
  Age: 42 Year
  Sex: Male

DRUGS (4)
  1. VIOXX [Suspect]
     Route: 048
     Dates: start: 20040501, end: 20040801
  2. VIOXX [Suspect]
     Route: 048
     Dates: start: 20040801, end: 20040914
  3. VIOXX [Suspect]
     Route: 048
     Dates: start: 20040917
  4. HYDROCODONE BITARTRATE [Concomitant]
     Route: 065

REACTIONS (7)
  - BRADYCARDIA [None]
  - CORONARY ARTERY OCCLUSION [None]
  - CORONARY ARTERY STENOSIS [None]
  - DYSLIPIDAEMIA [None]
  - HYPERTENSION [None]
  - MYOCARDIAL INFARCTION [None]
  - SINUS BRADYCARDIA [None]
